FAERS Safety Report 8766313 (Version 2)
Quarter: 2012Q4

REPORT INFORMATION
  Report Type: 
  Country: JP (occurrence: JP)
  Receive Date: 20120904
  Receipt Date: 20121129
  Transmission Date: 20130627
  Serious: Yes (Hospitalization, Other)
  Sender: FDA-Public Use
  Company Number: JP-009507513-2012SP022462

PATIENT
  Age: 54 Year
  Sex: Female
  Weight: 56 kg

DRUGS (12)
  1. PEGINTERFERON ALFA-2B [Suspect]
     Indication: CHRONIC HEPATITIS C
     Dosage: 1.5 ?g/kg, QW
     Route: 058
     Dates: start: 20120215
  2. REBETOL [Suspect]
     Indication: CHRONIC HEPATITIS C
     Dosage: 400 mg, QD
     Route: 048
     Dates: start: 20120215, end: 20120228
  3. REBETOL [Suspect]
     Dosage: 200 mg, QD
     Route: 048
     Dates: start: 20120229, end: 20120612
  4. REBETOL [Suspect]
     Dosage: 400 mg, QD
     Route: 048
     Dates: start: 20120613, end: 20120619
  5. REBETOL [Suspect]
     Dosage: 600 mg, QD
     Route: 048
     Dates: start: 20120620, end: 20120731
  6. TELAVIC [Suspect]
     Indication: CHRONIC HEPATITIS C
     Dosage: 2250 mg, QD
     Route: 048
     Dates: start: 20120215, end: 20120221
  7. TELAVIC [Suspect]
     Dosage: 1500 mg, QD
     Route: 048
     Dates: start: 20120222, end: 20120508
  8. URSO [Concomitant]
     Indication: CHRONIC HEPATITIS C
     Dosage: 300 mg, QD
     Route: 048
  9. OMEPRAL [Concomitant]
     Indication: GASTROOESOPHAGEAL REFLUX DISEASE
     Dosage: 10 mg, QD
     Route: 048
  10. JANUVIA TABLETS 50MG [Concomitant]
     Indication: DIABETES MELLITUS
     Dosage: 50 mg, QD
     Route: 048
  11. LOXONIN [Concomitant]
     Indication: PROPHYLAXIS
     Dosage: 180 mg prn
     Route: 048
     Dates: start: 20120215
  12. LOXONIN [Concomitant]
     Dosage: 180 mg, qd
     Route: 048
     Dates: end: 20120516

REACTIONS (5)
  - Insomnia [Recovering/Resolving]
  - Nausea [Recovering/Resolving]
  - Decreased appetite [Recovering/Resolving]
  - Anxiety disorder [Recovering/Resolving]
  - Haemoglobin decreased [Recovered/Resolved]
